FAERS Safety Report 17459969 (Version 2)
Quarter: 2020Q1

REPORT INFORMATION
  Report Type: Spontaneous
  Country: US (occurrence: US)
  Receive Date: 20200226
  Receipt Date: 20200305
  Transmission Date: 20200409
  Serious: Yes (Other)
  Sender: FDA-Public Use
  Company Number: US-HORIZON-ACT-0096-2020

PATIENT
  Age: 92 Year
  Sex: Female

DRUGS (1)
  1. ACTIMMUNE [Suspect]
     Active Substance: INTERFERON GAMMA-1B
     Indication: CUTANEOUS T-CELL LYMPHOMA
     Dosage: 100MCG 2 TIMES WEEKLY

REACTIONS (2)
  - Non-Hodgkin^s lymphoma [Unknown]
  - Off label use [Unknown]
